FAERS Safety Report 8835210 (Version 1)
Quarter: 2012Q4

REPORT INFORMATION
  Report Type: 
  Country: FR (occurrence: FR)
  Receive Date: 20121011
  Receipt Date: 20121011
  Transmission Date: 20130627
  Serious: Yes (Hospitalization)
  Sender: FDA-Public Use
  Company Number: FR-PFIZER INC-2012250242

PATIENT
  Age: 67 Year
  Sex: Female

DRUGS (6)
  1. INIPOMP [Suspect]
     Dosage: 40 mg, Daily
     Route: 048
     Dates: end: 20120913
  2. XEROQUEL [Suspect]
     Indication: BIPOLAR DISORDER
     Dosage: 300mg, daily
     Route: 048
     Dates: start: 20120907, end: 20120913
  3. STILNOX [Suspect]
     Dosage: 10 mg, daily
     Route: 048
     Dates: end: 20120913
  4. ENDOTELON [Suspect]
     Dosage: 300 mg, daily
     Route: 048
     Dates: end: 20120913
  5. PROZAC [Concomitant]
     Dosage: 20 mg, UNK
  6. TRANXENE [Concomitant]
     Dosage: 15 mg, daily
     Route: 048

REACTIONS (5)
  - Dysarthria [Recovered/Resolved]
  - Hypotension [Recovered/Resolved]
  - Fall [Recovered/Resolved]
  - Confusional state [Recovered/Resolved]
  - Malaise [Recovered/Resolved]
